FAERS Safety Report 7338056-9 (Version None)
Quarter: 2011Q1

REPORT INFORMATION
  Report Type: 
  Country: None (occurrence: None)
  Receive Date: 20110308
  Receipt Date: 20110222
  Transmission Date: 20110831
  Serious: Yes (Other)
  Sender: FDA-Public Use
  Company Number: PHHY2011JP04929

PATIENT
  Sex: Male
  Weight: 46 kg

DRUGS (8)
  1. SIGMART [Concomitant]
     Dosage: 15 MG, UNK
     Route: 048
     Dates: start: 20080822, end: 20100212
  2. ASPIRIN [Concomitant]
     Dosage: 100 MG, UNK
     Route: 048
     Dates: start: 20080822, end: 20100212
  3. VALSARTAN [Suspect]
     Indication: RENAL FAILURE CHRONIC
     Dosage: 40 MG, QD
     Route: 048
     Dates: start: 20081017, end: 20100212
  4. ARTIST [Concomitant]
     Indication: HYPERTENSION
     Dosage: 2.5 MG, UNK
     Route: 048
     Dates: start: 20080822, end: 20100212
  5. PARIET [Concomitant]
     Dosage: UNK
     Route: 048
     Dates: start: 20080822, end: 20100212
  6. PANALDINE [Concomitant]
     Dosage: 100 MG, UNK
     Route: 048
     Dates: start: 20080822, end: 20100212
  7. KALIMATE [Concomitant]
     Dosage: UNK
     Route: 048
     Dates: start: 20090313, end: 20100212
  8. AMARYL [Concomitant]
     Dosage: UNK
     Route: 048
     Dates: start: 20080822, end: 20100212

REACTIONS (5)
  - BLOOD CREATININE INCREASED [None]
  - BLOOD UREA INCREASED [None]
  - CONCOMITANT DISEASE PROGRESSION [None]
  - HYPERKALAEMIA [None]
  - NEPHROGENIC ANAEMIA [None]
